FAERS Safety Report 6685163-X (Version None)
Quarter: 2010Q2

REPORT INFORMATION
  Report Type: 
  Country: None (occurrence: None)
  Receive Date: 20100416
  Receipt Date: 20100409
  Transmission Date: 20101027
  Serious: Yes (Death, Other)
  Sender: FDA-Public Use
  Company Number: FR-CEPHALON-2010002234

PATIENT
  Sex: Male

DRUGS (3)
  1. TREANDA [Suspect]
     Indication: MULTIPLE MYELOMA
     Dates: start: 20090106
  2. TREANDA [Suspect]
     Dates: start: 20090303, end: 20090304
  3. TREANDA [Suspect]
     Dates: start: 20090330, end: 20090401

REACTIONS (5)
  - DEATH [None]
  - FEBRILE NEUTROPENIA [None]
  - GASTROINTESTINAL TOXICITY [None]
  - NEUTROPENIA [None]
  - VOMITING [None]
